FAERS Safety Report 6719249-8 (Version None)
Quarter: 2010Q2

REPORT INFORMATION
  Report Type: 
  Country: None (occurrence: None)
  Receive Date: 20100507
  Receipt Date: 20100423
  Transmission Date: 20101027
  Serious: Yes (Hospitalization, Other)
  Sender: FDA-Public Use
  Company Number: 010492

PATIENT
  Sex: Male
  Weight: 69.4 kg

DRUGS (5)
  1. KEPPRA [Suspect]
     Indication: CONVULSION
     Dosage: 2500 MG, 1000 MG IN MORNING AND 15000 MG IN THE EVENING, ORAL
     Route: 048
     Dates: start: 20090501
  2. KEPPRA [Suspect]
     Indication: CONVULSION
     Dosage: 1000 MG, BID, ORAL
     Route: 048
  3. TEGRETOL [Concomitant]
  4. TEMODAR [Concomitant]
  5. LACOSAMIDE [Suspect]
     Indication: CONVULSION
     Dosage: 50 MG, BID, 100 MG BID, ORAL
     Route: 048

REACTIONS (5)
  - BRAIN NEOPLASM MALIGNANT [None]
  - GRAND MAL CONVULSION [None]
  - INAPPROPRIATE SCHEDULE OF DRUG ADMINISTRATION [None]
  - MEDICATION ERROR [None]
  - PETIT MAL EPILEPSY [None]
